FAERS Safety Report 23262011 (Version 2)
Quarter: 2023Q4

REPORT INFORMATION
  Report Type: Report from Study
  Country: ES (occurrence: ES)
  Receive Date: 20231205
  Receipt Date: 20231215
  Transmission Date: 20240109
  Serious: Yes (Other)
  Sender: FDA-Public Use
  Company Number: ES-GRUNENTHAL-2023-102696

PATIENT
  Age: 44 Year
  Sex: Female

DRUGS (2)
  1. QUTENZA [Suspect]
     Active Substance: CAPSAICIN
     Indication: Neuralgia
     Dosage: 2 DOSAGE FORM, ONCE
     Route: 003
     Dates: start: 20230329, end: 20230329
  2. QUTENZA [Suspect]
     Active Substance: CAPSAICIN
     Indication: Back pain
     Dosage: 2 DOSAGE FORM, ONCE
     Route: 003
     Dates: start: 20231103, end: 20231103

REACTIONS (4)
  - Application site pain [Recovered/Resolved]
  - Road traffic accident [Not Recovered/Not Resolved]
  - Post-traumatic neck syndrome [Not Recovered/Not Resolved]
  - Neuropathy peripheral [Not Recovered/Not Resolved]

NARRATIVE: CASE EVENT DATE: 20230329
